FAERS Safety Report 15053821 (Version 1)
Quarter: 2018Q2

REPORT INFORMATION
  Report Type: Report from Study
  Country: US (occurrence: US)
  Receive Date: 20180622
  Receipt Date: 20180622
  Transmission Date: 20180711
  Serious: No
  Sender: FDA-Public Use
  Company Number: US-AMGEN-USASL2016060658

PATIENT
  Age: 62 Year
  Sex: Female

DRUGS (1)
  1. NPLATE [Suspect]
     Active Substance: ROMIPLOSTIM
     Indication: IMMUNE THROMBOCYTOPENIC PURPURA
     Dosage: UNK
     Route: 065
     Dates: start: 20160414

REACTIONS (8)
  - Procedural pain [Unknown]
  - Asthenia [Unknown]
  - Fatigue [Unknown]
  - Haemoglobin abnormal [Unknown]
  - Ill-defined disorder [Unknown]
  - Haematocrit abnormal [Unknown]
  - Impaired healing [Unknown]
  - Wound haemorrhage [Unknown]
